FAERS Safety Report 4569794-9 (Version None)
Quarter: 2005Q1

REPORT INFORMATION
  Report Type: 
  Country: None (occurrence: None)
  Receive Date: 20050203
  Receipt Date: 20041018
  Transmission Date: 20050727
  Serious: Yes (Life-Threatening, Hospitalization, Disabling)
  Sender: FDA-Public Use
  Company Number: US-MERCK-0410USA02771

PATIENT
  Age: 48 Year
  Sex: Female

DRUGS (20)
  1. VIOXX [Suspect]
     Indication: ANALGESIC EFFECT
     Route: 048
     Dates: start: 20020611, end: 20020722
  2. ULTRACET [Concomitant]
     Route: 065
  3. PIROXICAM [Concomitant]
     Route: 065
  4. [THERAPY UNSPECIFIED] [Concomitant]
     Route: 065
  5. HYDROCHLOROTHIAZIDE [Concomitant]
     Route: 065
  6. VERAPAMIL [Concomitant]
     Route: 065
  7. FLUOXETINE [Concomitant]
     Route: 065
  8. INSULIN [Concomitant]
     Route: 065
  9. [THERAPY UNSPECIFIED] [Concomitant]
     Route: 065
  10. THEOPHYLLINE [Concomitant]
     Route: 065
  11. [THERAPY UNSPECIFIED] [Concomitant]
     Route: 065
  12. [THERAPY UNSPECIFIED] [Concomitant]
     Route: 065
  13. POTASSIUM (UNSPECIFIED) [Concomitant]
     Route: 065
  14. METFORMIN [Concomitant]
     Route: 065
  15. SKELAXIN [Concomitant]
     Route: 065
  16. NABUMETONE [Concomitant]
     Route: 065
  17. [THERAPY UNSPECIFIED] [Concomitant]
     Route: 065
  18. DICLOFENAC POTASSIUM [Concomitant]
     Route: 065
  19. FLOVENT [Concomitant]
     Route: 065
  20. [THERAPY UNSPECIFIED] [Concomitant]
     Route: 065

REACTIONS (10)
  - ADVERSE EVENT [None]
  - ARTHRALGIA [None]
  - BONE DISORDER [None]
  - CEREBROVASCULAR ACCIDENT [None]
  - DIABETES MELLITUS [None]
  - DYSPNOEA [None]
  - FEELING ABNORMAL [None]
  - HYPERTENSION [None]
  - RENAL FAILURE [None]
  - WHEEZING [None]
